FAERS Safety Report 7380585-6 (Version None)
Quarter: 2011Q1

REPORT INFORMATION
  Report Type: 
  Country: None (occurrence: None)
  Receive Date: 20110329
  Receipt Date: 20110316
  Transmission Date: 20110831
  Serious: Yes (Death, Hospitalization)
  Sender: FDA-Public Use
  Company Number: US-ACTELION-A-US2011-44324

PATIENT

DRUGS (4)
  1. REVATIO [Concomitant]
  2. COUMADIN [Concomitant]
  3. TRACLEER [Suspect]
     Dosage: 62.5 MG, BID
     Route: 048
     Dates: start: 20100812, end: 20100909
  4. TRACLEER [Suspect]
     Indication: PULMONARY ARTERIAL HYPERTENSION
     Dosage: 125 MG, BID
     Route: 048
     Dates: start: 20100910, end: 20110228

REACTIONS (7)
  - DEATH [None]
  - COR PULMONALE [None]
  - PULMONARY CONGESTION [None]
  - FLUID OVERLOAD [None]
  - PULMONARY VENO-OCCLUSIVE DISEASE [None]
  - DYSPNOEA [None]
  - TRANSPLANT EVALUATION [None]
